FAERS Safety Report 6782679-2 (Version None)
Quarter: 2010Q2

REPORT INFORMATION
  Report Type: 
  Country: None (occurrence: None)
  Receive Date: 20100621
  Receipt Date: 20100615
  Transmission Date: 20101027
  Serious: Yes (Death, Other)
  Sender: FDA-Public Use
  Company Number: US-ELI_LILLY_AND_COMPANY-US201005005317

PATIENT
  Sex: Female

DRUGS (4)
  1. ALIMTA [Suspect]
     Indication: OVARIAN CANCER
     Dosage: UNK, UNK
     Dates: start: 20100201
  2. GEMZAR [Suspect]
     Indication: OVARIAN CANCER
  3. VITAMIN B-12 [Concomitant]
  4. FOLIC ACID [Concomitant]

REACTIONS (1)
  - MALIGNANT NEOPLASM PROGRESSION [None]
